FAERS Safety Report 4357064-3 (Version None)
Quarter: 2004Q2

REPORT INFORMATION
  Report Type: 
  Country: None (occurrence: None)
  Receive Date: 20040512
  Receipt Date: 20040311
  Transmission Date: 20050107
  Serious: Yes (Hospitalization)
  Sender: FDA-Public Use
  Company Number: FR-ROCHE-361466

PATIENT
  Age: 24 Year
  Sex: Female
  Weight: 60 kg

DRUGS (2)
  1. ROCEPHIN [Suspect]
     Dosage: FORM REPORTED AS INJECTABLE SOLUTIONN.
     Route: 030
  2. AMOXICILLIN [Concomitant]
     Indication: ANGINA PECTORIS

REACTIONS (2)
  - PANCREATITIS [None]
  - RESPIRATORY DISORDER [None]
